FAERS Safety Report 14715427 (Version 1)
Quarter: 2018Q2

REPORT INFORMATION
  Report Type: Spontaneous
  Country: FR (occurrence: FR)
  Receive Date: 20180404
  Receipt Date: 20180404
  Transmission Date: 20180711
  Serious: Yes (Death)
  Sender: FDA-Public Use
  Company Number: FR-BAXTER-2018BAX009891

PATIENT
  Age: 60 Year
  Sex: Male
  Weight: 49 kg

DRUGS (7)
  1. PIPERACILLINE TAZOBACTAM [Suspect]
     Active Substance: PIPERACILLIN SODIUM\TAZOBACTAM SODIUM
     Indication: PRODUCT USED FOR UNKNOWN INDICATION
     Dosage: 6G/750MG
     Route: 042
     Dates: start: 20180225, end: 20180304
  2. VITAMIN K1 [Suspect]
     Active Substance: PHYTONADIONE
     Indication: HYPOTHROMBINAEMIA
     Dosage: STRENGTH AND DOSAGE FORM: 10 MG/1 ML, ORAL SOLUTION AND SOLUTION FOR INJECTION
     Route: 042
     Dates: start: 20180227, end: 20180301
  3. VELCADE [Suspect]
     Active Substance: BORTEZOMIB
     Indication: AMYLOIDOSIS
     Route: 042
     Dates: start: 20180301, end: 20180301
  4. DEXAMETHASONE. [Suspect]
     Active Substance: DEXAMETHASONE
     Indication: AMYLOIDOSIS
     Dosage: STRENGTH: 20 MG/5 ML, IN VIAL
     Route: 042
     Dates: start: 20180301, end: 20180302
  5. NEFOPAM [Suspect]
     Active Substance: NEFOPAM
     Indication: ANALGESIC THERAPY
     Dosage: STRENGTH: 20 MG/2ML
     Route: 042
     Dates: start: 20180304, end: 20180305
  6. LOVENOX [Suspect]
     Active Substance: ENOXAPARIN SODIUM
     Indication: THROMBOSIS PROPHYLAXIS
     Route: 058
     Dates: start: 20180226, end: 20180306
  7. ENDOXAN 50 MG, COMPRIM? ENROB? [Suspect]
     Active Substance: CYCLOPHOSPHAMIDE
     Indication: AMYLOIDOSIS
     Route: 048
     Dates: start: 20180303, end: 20180303

REACTIONS (2)
  - Cardiac failure [Fatal]
  - Cardiogenic shock [Fatal]

NARRATIVE: CASE EVENT DATE: 20180306
